FAERS Safety Report 24431863 (Version 1)
Quarter: 2024Q4

REPORT INFORMATION
  Report Type: Spontaneous
  Country: US (occurrence: US)
  Receive Date: 20241014
  Receipt Date: 20241014
  Transmission Date: 20250115
  Serious: No
  Sender: RANBAXY
  Company Number: US-SUN PHARMACEUTICAL INDUSTRIES LTD-2024R1-440428

PATIENT
  Sex: Female

DRUGS (1)
  1. LORATADINE\PSEUDOEPHEDRINE SULFATE [Suspect]
     Active Substance: LORATADINE\PSEUDOEPHEDRINE SULFATE
     Indication: Rhinitis allergic
     Dosage: UNK
     Route: 065
     Dates: start: 20240325

REACTIONS (3)
  - Fatigue [Unknown]
  - Insomnia [Unknown]
  - Drug intolerance [Unknown]
